FAERS Safety Report 9592801 (Version 1)
Quarter: 2013Q4

REPORT INFORMATION
  Report Type: Spontaneous
  Country: US (occurrence: None)
  Receive Date: 20131003
  Receipt Date: 20131003
  Transmission Date: 20140711
  Serious: Yes (Other)
  Sender: FDA-Public Use
  Company Number: None

PATIENT
  Sex: Female
  Weight: 80.74 kg

DRUGS (1)
  1. HUMIRA, 40 MG, ABBVIE [Suspect]
     Indication: CROHN^S DISEASE
     Route: 058
     Dates: start: 20130813

REACTIONS (2)
  - Throat tightness [None]
  - Chest discomfort [None]
